FAERS Safety Report 5481057-6 (Version None)
Quarter: 2007Q4

REPORT INFORMATION
  Report Type: 
  Country: None (occurrence: None)
  Receive Date: 20071009
  Receipt Date: 20070927
  Transmission Date: 20080405
  Serious: Yes (Death)
  Sender: FDA-Public Use
  Company Number: US-PFIZER INC-2007081311

PATIENT
  Sex: Male

DRUGS (2)
  1. NORVASC [Suspect]
  2. LIPITOR [Suspect]

REACTIONS (1)
  - DEATH [None]
